FAERS Safety Report 6040095-5 (Version None)
Quarter: 2009Q1

REPORT INFORMATION
  Report Type: 
  Country: None (occurrence: None)
  Receive Date: 20090116
  Receipt Date: 20071211
  Transmission Date: 20090719
  Serious: No
  Sender: FDA-Public Use
  Company Number: US-BRISTOL-MYERS SQUIBB COMPANY-14011357

PATIENT
  Sex: Male

DRUGS (2)
  1. ABILIFY [Suspect]
     Indication: MENTAL RETARDATION
  2. ABILIFY [Suspect]
     Indication: IMPULSE-CONTROL DISORDER

REACTIONS (2)
  - NAUSEA [None]
  - VOMITING [None]
